FAERS Safety Report 8255153-4 (Version None)
Quarter: 2012Q2

REPORT INFORMATION
  Report Type: 
  Country: None (occurrence: None)
  Receive Date: 20120403
  Receipt Date: 20120326
  Transmission Date: 20120825
  Serious: Yes (Death, Other)
  Sender: FDA-Public Use
  Company Number: US-JNJFOC-20100701863

PATIENT
  Sex: Male
  Weight: 66.23 kg

DRUGS (21)
  1. SIMPONI [Suspect]
     Indication: RHEUMATOID ARTHRITIS
     Route: 058
     Dates: start: 20090520, end: 20100501
  2. CELEXA [Concomitant]
  3. LORTAB [Concomitant]
     Indication: PAIN
     Dosage: 7.5/500
  4. XANAX [Concomitant]
  5. SOLU-MEDROL [Concomitant]
  6. SIMPONI [Suspect]
     Route: 058
     Dates: start: 20101004
  7. PREDNISONE [Concomitant]
  8. PHENERGAN HCL [Concomitant]
  9. TRAZODONE HCL [Concomitant]
     Indication: SLEEP DISORDER
  10. ZOFRAN [Concomitant]
  11. PROTONIX [Concomitant]
  12. MAGNESIUM OXIDE [Concomitant]
     Route: 048
  13. BLEOMYCIN SULFATE [Suspect]
     Indication: HODGKIN'S DISEASE
  14. LOMOTIL [Concomitant]
  15. POTASSIUM CHLORIDE [Concomitant]
  16. MAGIC MOUTHWASH [Concomitant]
  17. REMICADE [Suspect]
     Indication: RHEUMATOID ARTHRITIS
     Route: 042
  18. LEVAQUIN [Concomitant]
     Indication: PYREXIA
  19. TAMIFLU [Concomitant]
  20. PROCRIT [Concomitant]
  21. PEGFILGRASTIM [Concomitant]
     Indication: LEUKOPENIA
     Dates: start: 20110301

REACTIONS (5)
  - CHOLELITHIASIS [None]
  - DIARRHOEA INFECTIOUS [None]
  - HODGKIN'S DISEASE [None]
  - INTERSTITIAL LUNG DISEASE [None]
  - ACUTE RESPIRATORY DISTRESS SYNDROME [None]
